FAERS Safety Report 5753050-7 (Version None)
Quarter: 2008Q2

REPORT INFORMATION
  Report Type: 
  Country: None (occurrence: None)
  Receive Date: 20080527
  Receipt Date: 20080508
  Transmission Date: 20081010
  Serious: Yes (Disabling)
  Sender: FDA-Public Use
  Company Number: 2008S1007990

PATIENT
  Age: 43 Year
  Sex: Female

DRUGS (3)
  1. OMEPRAZOLE (OMEPRAZOLE) [Suspect]
     Indication: DYSPEPSIA
     Dosage: 20 MG; ORAL
     Route: 048
     Dates: start: 20080122, end: 20080207
  2. MEFENAMIC ACID [Concomitant]
  3. TRANEXAMIC ACID [Concomitant]

REACTIONS (1)
  - EOSINOPHILIA [None]
